FAERS Safety Report 8742484 (Version 4)
Quarter: 2013Q1

REPORT INFORMATION
  Report Type: Spontaneous
  Country: IT (occurrence: IT)
  Receive Date: 20120824
  Receipt Date: 20130117
  Transmission Date: 20140127
  Serious: Yes (Hospitalization)
  Sender: FDA-Public Use
  Company Number: IT-BRISTOL-MYERS SQUIBB COMPANY-16871386

PATIENT
  Age: 41 Year
  Sex: Female

DRUGS (2)
  1. GLUCOPHAGE [Suspect]
     Dosage: FORMULATION: GLUCOPHAGE 1000MG
     Route: 048
     Dates: start: 20120621, end: 20120621
  2. GLICLAZIDE [Suspect]
     Route: 048
     Dates: start: 20120621, end: 20120621

REACTIONS (2)
  - Sopor [Recovered/Resolved]
  - Self injurious behaviour [Recovered/Resolved]
